FAERS Safety Report 14259208 (Version 1)
Quarter: 2017Q4

REPORT INFORMATION
  Report Type: Spontaneous
  Country: US (occurrence: US)
  Receive Date: 20171207
  Receipt Date: 20171207
  Transmission Date: 20180321
  Serious: No
  Sender: FDA-Public Use
  Company Number: None

PATIENT
  Sex: Female
  Weight: 122.4 kg

DRUGS (1)
  1. OLOPATADINE HCL [Suspect]
     Active Substance: OLOPATADINE HYDROCHLORIDE
     Indication: CONJUNCTIVITIS ALLERGIC
     Dosage: STRENGTH 0.1 % PER GTT DROP(S)

REACTIONS (3)
  - Eye pain [None]
  - Eye pruritus [None]
  - Eye irritation [None]
